FAERS Safety Report 6357142-3 (Version None)
Quarter: 2009Q3

REPORT INFORMATION
  Report Type: 
  Country: None (occurrence: None)
  Receive Date: 20090910
  Receipt Date: 20090828
  Transmission Date: 20100115
  Serious: Yes (Other)
  Sender: FDA-Public Use
  Company Number: 2009S1005841

PATIENT
  Sex: Female

DRUGS (1)
  1. PHOSPHOSODA FLAVOR NOT SPECIFIED [Suspect]
     Dosage: 90 ML; TOTA; PO
     Route: 048
     Dates: start: 20060301, end: 20060301

REACTIONS (1)
  - RENAL FAILURE CHRONIC [None]
